FAERS Safety Report 9439759 (Version 1)
Quarter: 2013Q3

REPORT INFORMATION
  Report Type: Spontaneous
  Country: IT (occurrence: IT)
  Receive Date: 20130805
  Receipt Date: 20130805
  Transmission Date: 20140515
  Serious: Yes (Hospitalization)
  Sender: FDA-Public Use
  Company Number: IT-AMGEN-ITASP2013054418

PATIENT
  Age: 23 Year
  Sex: Male

DRUGS (1)
  1. GRANULOKINE [Suspect]
     Indication: PRODUCT USED FOR UNKNOWN INDICATION
     Dosage: 300MCG, TOTAL
     Route: 030

REACTIONS (2)
  - Dyspnoea [Unknown]
  - Hyperhidrosis [Unknown]
